FAERS Safety Report 5068316-6 (Version None)
Quarter: 2006Q3

REPORT INFORMATION
  Report Type: 
  Country: None (occurrence: None)
  Receive Date: 20060802
  Receipt Date: 20050729
  Transmission Date: 20061208
  Serious: No
  Sender: FDA-Public Use
  Company Number: US-BRISTOL-MYERS SQUIBB COMPANY-13057278

PATIENT
  Age: 84 Year
  Sex: Female
  Weight: 83 kg

DRUGS (12)
  1. COUMADIN [Suspect]
     Dosage: 2.5 MG DAILY ON MONDAY, WEDNESDAY, AND FRIDAY; 5 MG DAILY ON TUESDAY, THURSDAY, SATURDAY, AND SUNDAY
  2. ASPIRIN [Concomitant]
  3. ENALAPRIL MALEATE [Concomitant]
  4. FOLIC ACID [Concomitant]
  5. NPH INSULIN [Concomitant]
  6. LASIX [Concomitant]
  7. PEPCID [Concomitant]
  8. POTASSIUM [Concomitant]
  9. REGULAR INSULIN [Concomitant]
  10. SYNTHROID [Concomitant]
  11. TOPAMAX [Concomitant]
  12. TRILEPTAL [Concomitant]

REACTIONS (1)
  - INTERNATIONAL NORMALISED RATIO DECREASED [None]
